FAERS Safety Report 6781061-1 (Version None)
Quarter: 2010Q2

REPORT INFORMATION
  Report Type: 
  Country: None (occurrence: None)
  Receive Date: 20100617
  Receipt Date: 20100617
  Transmission Date: 20101027
  Serious: Yes (Life-Threatening)
  Sender: FDA-Public Use
  Company Number: None

PATIENT
  Age: 58 Year
  Sex: Male
  Weight: 156.49 kg

DRUGS (1)
  1. SYMLIN [Suspect]
     Indication: DIABETES MELLITUS
     Dosage: 30 MCG TID SQ
     Route: 058
     Dates: start: 20100429, end: 20100614

REACTIONS (1)
  - DYSPNOEA [None]
